FAERS Safety Report 22528527 (Version 1)
Quarter: 2023Q2

REPORT INFORMATION
  Report Type: Report from Study
  Country: EC (occurrence: EC)
  Receive Date: 20230607
  Receipt Date: 20230607
  Transmission Date: 20230721
  Serious: Yes (Hospitalization)
  Sender: FDA-Public Use
  Company Number: EC-JNJFOC-20230602350

PATIENT
  Age: 71 Year
  Sex: Male

DRUGS (1)
  1. ESKETAMINE [Suspect]
     Active Substance: ESKETAMINE
     Indication: Depression
     Dates: start: 20230520

REACTIONS (2)
  - Anxiety [Unknown]
  - Hypertension [Unknown]

NARRATIVE: CASE EVENT DATE: 20230531
